FAERS Safety Report 8179576-7 (Version None)
Quarter: 2012Q1

REPORT INFORMATION
  Report Type: 
  Country: None (occurrence: None)
  Receive Date: 20120229
  Receipt Date: 20120229
  Transmission Date: 20120608
  Serious: Yes (Other)
  Sender: FDA-Public Use
  Company Number: None

PATIENT
  Age: 65 Year
  Sex: Male
  Weight: 95.2554 kg

DRUGS (1)
  1. EXELON [Suspect]
     Dosage: 1 PATCH EVERY 24 HOURS
     Dates: start: 20111201, end: 20120104

REACTIONS (1)
  - BLOOD GLUCOSE INCREASED [None]
